FAERS Safety Report 10897940 (Version 2)
Quarter: 2015Q1

REPORT INFORMATION
  Report Type: Spontaneous
  Country: NL (occurrence: NL)
  Receive Date: 20150309
  Receipt Date: 20150311
  Transmission Date: 20150721
  Serious: Yes (Life-Threatening, Hospitalization)
  Sender: FDA-Public Use
  Company Number: PHHY2015NL024291

PATIENT
  Age: 69 Year
  Sex: Female

DRUGS (2)
  1. VERAPAMIL HYDROCHLORIDE SANDOZ [Suspect]
     Active Substance: VERAPAMIL HYDROCHLORIDE
     Indication: ATRIAL FLUTTER
     Dosage: 240 MG, QD
     Route: 048
     Dates: start: 20150216, end: 20150216
  2. RIVAROXABAN [Concomitant]
     Active Substance: RIVAROXABAN
     Indication: PRODUCT USED FOR UNKNOWN INDICATION
     Dosage: 20 MG, QD
     Route: 048

REACTIONS (1)
  - Cardiogenic shock [Recovering/Resolving]

NARRATIVE: CASE EVENT DATE: 20150216
